FAERS Safety Report 18065934 (Version 3)
Quarter: 2020Q3

REPORT INFORMATION
  Report Type: Spontaneous
  Country: PL (occurrence: PL)
  Receive Date: 20200724
  Receipt Date: 20200814
  Transmission Date: 20201103
  Serious: Yes (Hospitalization)
  Sender: FDA-Public Use
  Company Number: PL-NOVOPROD-741661

PATIENT
  Age: 61 Year
  Sex: Female
  Weight: 91 kg

DRUGS (5)
  1. TRESIBA [Suspect]
     Active Substance: INSULIN DEGLUDEC
     Indication: TYPE 2 DIABETES MELLITUS
     Dosage: 40 IU, QD
     Route: 058
  2. METFORMIN [Suspect]
     Active Substance: METFORMIN HYDROCHLORIDE
     Indication: TYPE 2 DIABETES MELLITUS
     Dosage: 1 G, TID
     Route: 048
  3. TRESIBA [Suspect]
     Active Substance: INSULIN DEGLUDEC
     Dosage: DOSE WAS GRADUALLY DECREASED DURING HOSPITALISATION UNTIL WITHDRAWAL
     Route: 058
  4. NOVORAPID [Suspect]
     Active Substance: INSULIN ASPART
     Indication: TYPE 2 DIABETES MELLITUS
     Dosage: 24 IU, QD (BEGGINING DOSES 10?6?8 U)
     Route: 058
  5. NOVORAPID [Suspect]
     Active Substance: INSULIN ASPART
     Dosage: GRADUALLY DECREASED UNTIL WITHDRAWAL
     Route: 058

REACTIONS (2)
  - Diabetic metabolic decompensation [Recovered/Resolved]
  - Glycosylated haemoglobin increased [Recovered/Resolved]
